FAERS Safety Report 13992705 (Version 2)
Quarter: 2017Q4

REPORT INFORMATION
  Report Type: Spontaneous
  Country: US (occurrence: US)
  Receive Date: 20170920
  Receipt Date: 20171123
  Transmission Date: 20180321
  Serious: Yes (Other)
  Sender: FDA-Public Use
  Company Number: US-JNJFOC-20170906078

PATIENT
  Age: 61 Year
  Sex: Female
  Weight: 98.88 kg

DRUGS (9)
  1. BABY ASPIRIN [Concomitant]
     Active Substance: ASPIRIN
     Dosage: AT NIGHT
     Route: 065
  2. TURMERIC [Concomitant]
     Active Substance: HERBALS\TURMERIC
     Dosage: 2 TABLETS
     Route: 065
  3. FISH OIL [Concomitant]
     Active Substance: FISH OIL
     Dosage: TWO
     Route: 065
  4. STELARA [Suspect]
     Active Substance: USTEKINUMAB
     Indication: PSORIATIC ARTHROPATHY
     Route: 058
     Dates: start: 20170627
  5. NAPROXEN. [Suspect]
     Active Substance: NAPROXEN
     Indication: PAIN
     Dosage: ONCE IN THE MORNING
     Route: 065
  6. ACETAMINOPHEN. [Concomitant]
     Active Substance: ACETAMINOPHEN
     Indication: PAIN
     Dosage: 400 TO 500 MG FOR 2-TWICE A DAY
     Route: 065
  7. SILYMARIN [Concomitant]
     Active Substance: DIETARY SUPPLEMENT\HERBALS\MILK THISTLE
     Indication: LIVER DISORDER
     Route: 065
  8. CALCIUM [Concomitant]
     Active Substance: CALCIUM
     Dosage: ^2 DAILY^
     Route: 065
  9. VITAMIN D [Concomitant]
     Active Substance: CHOLECALCIFEROL
     Route: 065

REACTIONS (4)
  - Psoriatic arthropathy [Recovering/Resolving]
  - Weight increased [Unknown]
  - Renal function test abnormal [Unknown]
  - Sinusitis [Unknown]

NARRATIVE: CASE EVENT DATE: 2017
